FAERS Safety Report 14774049 (Version 1)
Quarter: 2018Q2

REPORT INFORMATION
  Report Type: Spontaneous
  Country: US (occurrence: US)
  Receive Date: 20180411
  Receipt Date: 20180411
  Transmission Date: 20180711
  Serious: Yes (Life-Threatening, Hospitalization, Disabling, Other)
  Sender: FDA-Public Use
  Company Number: None

PATIENT
  Age: 57 Year
  Sex: Female
  Weight: 97.87 kg

DRUGS (3)
  1. OPIOIDS [Concomitant]
     Active Substance: UNSPECIFIED INGREDIENT
  2. OTEZLA [Suspect]
     Active Substance: APREMILAST
     Indication: PSORIATIC ARTHROPATHY
     Dosage: ?          QUANTITY:2 DF DOSAGE FORM;?
     Route: 048
     Dates: start: 20130701, end: 20171101
  3. CELEBREX [Concomitant]
     Active Substance: CELECOXIB

REACTIONS (5)
  - Deafness [None]
  - Dysphagia [None]
  - Brain neoplasm [None]
  - Neuralgia [None]
  - Dysphonia [None]

NARRATIVE: CASE EVENT DATE: 20170201
